FAERS Safety Report 4730147-1 (Version None)
Quarter: 2005Q3

REPORT INFORMATION
  Report Type: 
  Country: None (occurrence: None)
  Receive Date: 20050728
  Receipt Date: 20050728
  Transmission Date: 20060218
  Serious: No
  Sender: FDA-Public Use
  Company Number: None

PATIENT
  Age: 55 Year
  Sex: Male

DRUGS (1)
  1. LOVASTATIN [Suspect]
     Indication: LIPIDS
     Dosage: 40 MG  QHS

REACTIONS (1)
  - MYALGIA [None]
